FAERS Safety Report 13826184 (Version 3)
Quarter: 2017Q3

REPORT INFORMATION
  Report Type: Spontaneous
  Country: FR (occurrence: FR)
  Receive Date: 20170802
  Receipt Date: 20170921
  Transmission Date: 20171127
  Serious: Yes (Congenital Anomaly, Other)
  Sender: FDA-Public Use
  Company Number: FR-GLAXOSMITHKLINE-FR2017GSK118733

PATIENT
  Age: 0 Day
  Sex: Male

DRUGS (2)
  1. EPIVIR [Suspect]
     Active Substance: LAMIVUDINE
     Indication: HIV INFECTION
     Dosage: UNK
     Route: 064
     Dates: end: 20170608
  2. ISENTRESS [Suspect]
     Active Substance: RALTEGRAVIR POTASSIUM
     Indication: HIV INFECTION
     Dosage: UNK
     Route: 064
     Dates: end: 20170608

REACTIONS (3)
  - Foetal exposure during pregnancy [Unknown]
  - Ear malformation [Unknown]
  - Oesophageal atresia [Recovered/Resolved with Sequelae]

NARRATIVE: CASE EVENT DATE: 20170608
